FAERS Safety Report 8851116 (Version 3)
Quarter: 2012Q4

REPORT INFORMATION
  Report Type: 
  Country: JP (occurrence: JP)
  Receive Date: 20121019
  Receipt Date: 20121225
  Transmission Date: 20130627
  Serious: Yes (Life-Threatening, Hospitalization)
  Sender: FDA-Public Use
  Company Number: JP-SANOFI-AVENTIS-2012SA076414

PATIENT
  Age: 69 Year
  Sex: Female
  Weight: 50.6 kg

DRUGS (9)
  1. PLAVIX [Suspect]
     Indication: PERIPHERAL ARTERIAL DISEASE
     Route: 048
     Dates: start: 20121002, end: 20121016
  2. PLAVIX [Suspect]
     Indication: ARTERIOSCLEROSIS
     Route: 048
     Dates: start: 20121002, end: 20121016
  3. ALOGLIPTIN BENZOATE [Suspect]
     Indication: DIABETES MELLITUS
     Route: 048
     Dates: start: 20121003
  4. ALOGLIPTIN BENZOATE [Suspect]
     Indication: HYPERGLYCAEMIA
     Route: 048
     Dates: start: 20121003
  5. MICARDIS [Suspect]
     Indication: HYPERTENSION
     Route: 048
     Dates: start: 20120929
  6. EPOETIN BETA [Suspect]
     Indication: RENAL ANEMIA
     Dosage: Dose:6000 unit(s)
     Route: 058
     Dates: start: 20120925
  7. AMLODIPINE [Concomitant]
     Indication: HYPERTENSION
     Route: 048
  8. SELBEX [Concomitant]
     Indication: GASTRITIS
     Route: 048
  9. KREMEZIN [Concomitant]
     Indication: CHRONIC KIDNEY DISEASE
     Route: 048

REACTIONS (4)
  - Cardiac failure [Recovering/Resolving]
  - Oedema [Recovering/Resolving]
  - Pleural effusion [Recovering/Resolving]
  - Blood pressure fluctuation [None]
